FAERS Safety Report 6118435-8 (Version None)
Quarter: 2009Q1

REPORT INFORMATION
  Report Type: 
  Country: None (occurrence: None)
  Receive Date: 20090314
  Receipt Date: 20090218
  Transmission Date: 20090719
  Serious: No
  Sender: FDA-Public Use
  Company Number: US-ABBOTT-09P-163-0558171-00

PATIENT
  Sex: Male
  Weight: 79.45 kg

DRUGS (12)
  1. HUMIRA [Suspect]
     Indication: CROHN'S DISEASE
     Route: 058
     Dates: start: 20080601
  2. IMEPRAZOLE [Concomitant]
     Indication: GASTROOESOPHAGEAL REFLUX DISEASE
  3. LOMOTIL [Concomitant]
     Indication: DIARRHOEA
     Route: 048
  4. IMODIUM [Concomitant]
     Indication: NAUSEA
     Route: 048
  5. PHENERGAN [Concomitant]
     Indication: NAUSEA
     Route: 048
  6. ZOFRAN [Concomitant]
     Indication: NAUSEA
     Route: 048
  7. PERCOCET [Concomitant]
     Indication: PAIN
     Dosage: 7.5/500 MG
     Route: 048
  8. XANAX [Concomitant]
     Indication: ANXIETY
     Route: 048
  9. AMARYL [Concomitant]
     Indication: TYPE 2 DIABETES MELLITUS
  10. AVANDIA [Concomitant]
     Indication: TYPE 2 DIABETES MELLITUS
     Route: 048
  11. LOVASTATIN [Concomitant]
     Indication: BLOOD CHOLESTEROL INCREASED
     Route: 048
  12. CALCIUM AND VITAMIN D [Concomitant]
     Indication: MEDICAL DIET
     Dosage: 600 MG/400 IU

REACTIONS (1)
  - INCORRECT DOSE ADMINISTERED [None]
